FAERS Safety Report 10871848 (Version 1)
Quarter: 2015Q1

REPORT INFORMATION
  Report Type: Spontaneous
  Country: US (occurrence: None)
  Receive Date: 20150223
  Receipt Date: 20150223
  Transmission Date: 20150721
  Serious: Yes (Life-Threatening)
  Sender: FDA-Public Use
  Company Number: None

PATIENT
  Age: 48 Year
  Sex: Female
  Weight: 77.11 kg

DRUGS (6)
  1. ASPIRINE [Concomitant]
     Active Substance: ASPIRIN
  2. VIT C FIZZY DRINK [Concomitant]
  3. MECLAZINE [Concomitant]
  4. THYROID REPLACEMENT HORMONE ONLY [Concomitant]
  5. SYNTHROID [Suspect]
     Active Substance: LEVOTHYROXINE SODIUM
     Indication: THYROID DISORDER
     Route: 048
  6. VALERIAN ROOT [Concomitant]
     Active Substance: VALERIAN

REACTIONS (6)
  - Energy increased [None]
  - Product tampering [None]
  - Product substitution issue [None]
  - Product quality issue [None]
  - Somnolence [None]
  - Asthenia [None]

NARRATIVE: CASE EVENT DATE: 20150212
